FAERS Safety Report 23551651 (Version 1)
Quarter: 2024Q1

REPORT INFORMATION
  Report Type: Spontaneous
  Country: SG (occurrence: SG)
  Receive Date: 20240222
  Receipt Date: 20240222
  Transmission Date: 20240410
  Serious: Yes (Hospitalization, Other)
  Sender: FDA-Public Use
  Company Number: SG-IPCA LABORATORIES LIMITED-IPC-2024-SG-000386

PATIENT

DRUGS (2)
  1. METFORMIN [Suspect]
     Active Substance: METFORMIN HYDROCHLORIDE
     Indication: Diabetes mellitus
     Dosage: 850 MILLIGRAM, TID
     Route: 065
  2. DIAZEPAM [Concomitant]
     Active Substance: DIAZEPAM
     Indication: Product used for unknown indication
     Dosage: 10 MILLIGRAM
     Route: 054

REACTIONS (7)
  - Lactic acidosis [Recovered/Resolved]
  - Euglycaemic diabetic ketoacidosis [Recovered/Resolved]
  - Atrial fibrillation [Recovered/Resolved]
  - Encephalitis [Recovered/Resolved]
  - Acute kidney injury [Recovered/Resolved]
  - Infarction [Recovered/Resolved]
  - Haemorrhage intracranial [Recovered/Resolved]
